FAERS Safety Report 5355730-4 (Version None)
Quarter: 2007Q2

REPORT INFORMATION
  Report Type: 
  Country: None (occurrence: None)
  Receive Date: 20070611
  Receipt Date: 20070611
  Transmission Date: 20071010
  Serious: Yes (Life-Threatening, Hospitalization)
  Sender: FDA-Public Use
  Company Number: None

PATIENT
  Age: 17 Year
  Sex: Male
  Weight: 77.1115 kg

DRUGS (1)
  1. DUAC [Suspect]
     Indication: ACNE
     Dosage: PEA SIZE AMOUT  2 TIMES DAILY
     Dates: start: 20061108, end: 20061119

REACTIONS (8)
  - ABDOMINAL PAIN UPPER [None]
  - APHASIA [None]
  - BLINDNESS TRANSIENT [None]
  - DIARRHOEA [None]
  - HAEMATOCHEZIA [None]
  - HYPOVENTILATION [None]
  - LOSS OF CONSCIOUSNESS [None]
  - VOMITING [None]
